FAERS Safety Report 8598550-X (Version None)
Quarter: 2012Q3

REPORT INFORMATION
  Report Type: 
  Country: None (occurrence: None)
  Receive Date: 20120806
  Receipt Date: 20120806
  Transmission Date: 20120928
  Serious: Yes (Other)
  Sender: FDA-Public Use
  Company Number: None

PATIENT
  Age: 34 Year
  Sex: Female
  Weight: 86.1834 kg

DRUGS (5)
  1. BRENTUXIMAB VEDOTIN (ADCETRIS) [Suspect]
     Indication: HODGKIN'S DISEASE
     Dosage: 150 MG IV Q3WEEKS
     Route: 042
     Dates: start: 20120621
  2. BRENTUXIMAB VEDOTIN (ADCETRIS) [Suspect]
     Indication: HODGKIN'S DISEASE
     Dosage: 150 MG IV Q3WEEKS
     Route: 042
     Dates: start: 20120531
  3. PREDNISONE TAPER [Concomitant]
  4. DICLOFENAC SODIUM [Concomitant]
  5. ONDANSETRON [Concomitant]

REACTIONS (6)
  - DYSPNOEA [None]
  - LUNG INFILTRATION [None]
  - TACHYCARDIA [None]
  - COUGH [None]
  - PYREXIA [None]
  - PLEURITIC PAIN [None]
